FAERS Safety Report 11251578 (Version 1)
Quarter: 2015Q3

REPORT INFORMATION
  Report Type: Spontaneous
  Country: FI (occurrence: FI)
  Receive Date: 20150708
  Receipt Date: 20150708
  Transmission Date: 20151125
  Serious: Yes (Hospitalization)
  Sender: FDA-Public Use
  Company Number: FI-ROXANE LABORATORIES, INC.-2015-RO-01087RO

PATIENT
  Sex: Female

DRUGS (1)
  1. DEXAMETHASONE. [Suspect]
     Active Substance: DEXAMETHASONE
     Indication: SARCOMA
     Route: 065

REACTIONS (1)
  - Thrombocytopenia [Unknown]
